FAERS Safety Report 16475796 (Version 1)
Quarter: 2019Q2

REPORT INFORMATION
  Report Type: Spontaneous
  Country: US (occurrence: US)
  Receive Date: 20190625
  Receipt Date: 20190625
  Transmission Date: 20190711
  Serious: Yes (Hospitalization)
  Sender: FDA-Public Use
  Company Number: US-VERTEX PHARMACEUTICALS-2019-005827

PATIENT
  Age: 29 Year
  Sex: Female

DRUGS (26)
  1. CAYSTON [Concomitant]
     Active Substance: AZTREONAM
  2. CULTURELLE [Concomitant]
     Active Substance: LACTOBACILLUS RHAMNOSUS
  3. CREON [Concomitant]
     Active Substance: PANCRELIPASE AMYLASE\PANCRELIPASE LIPASE\PANCRELIPASE PROTEASE
  4. IPRATROPIUM BROMIDE. [Concomitant]
     Active Substance: IPRATROPIUM BROMIDE
  5. PROAIR HFA [Concomitant]
     Active Substance: ALBUTEROL SULFATE
  6. INVEGA [Concomitant]
     Active Substance: PALIPERIDONE
  7. SINUS RINSE [Concomitant]
     Active Substance: SODIUM BICARBONATE\SODIUM CHLORIDE
  8. FEROSUL [Concomitant]
  9. SODIUM CHLORIDE. [Concomitant]
     Active Substance: SODIUM CHLORIDE
  10. ADVAIR HFA [Concomitant]
     Active Substance: FLUTICASONE PROPIONATE\SALMETEROL XINAFOATE
  11. GLUCAGON. [Concomitant]
     Active Substance: GLUCAGON
  12. BUDESONIDE. [Concomitant]
     Active Substance: BUDESONIDE
  13. AMITRIPTYLINE [Concomitant]
     Active Substance: AMITRIPTYLINE
  14. LYRICA [Concomitant]
     Active Substance: PREGABALIN
  15. PULMOZYME [Concomitant]
     Active Substance: DORNASE ALFA
  16. TOBRAMYCIN. [Concomitant]
     Active Substance: TOBRAMYCIN
  17. MEDROXYPROGESTERONE [Concomitant]
     Active Substance: MEDROXYPROGESTERONE
  18. SPIRIVA [Concomitant]
     Active Substance: TIOTROPIUM BROMIDE MONOHYDRATE
  19. COLISTIMETHATE                     /00013204/ [Concomitant]
     Active Substance: COLISTIMETHATE SODIUM
  20. MONISTAT [Concomitant]
     Active Substance: MICONAZOLE NITRATE
  21. CALCIUM                            /00060701/ [Concomitant]
     Active Substance: CALCIUM
  22. FLUTICASONE. [Concomitant]
     Active Substance: FLUTICASONE
  23. ORKAMBI [Suspect]
     Active Substance: IVACAFTOR\LUMACAFTOR
     Indication: CYSTIC FIBROSIS
     Dosage: 2 TABLETS (200/125 MG EACH), BID
     Route: 048
     Dates: start: 201508
  24. NOVOLOG [Concomitant]
     Active Substance: INSULIN ASPART
  25. VITAMIN C [Concomitant]
     Active Substance: ASCORBIC ACID
  26. E-400 [Concomitant]

REACTIONS (1)
  - Hospitalisation [Unknown]

NARRATIVE: CASE EVENT DATE: 201903
